FAERS Safety Report 5039864-X (Version None)
Quarter: 2006Q2

REPORT INFORMATION
  Report Type: 
  Country: None (occurrence: None)
  Receive Date: 20060601
  Receipt Date: 20060109
  Transmission Date: 20061013
  Serious: No
  Sender: FDA-Public Use
  Company Number: 2006PV006862

PATIENT
  Age: 52 Year
  Sex: Male
  Weight: 129.2752 kg

DRUGS (6)
  1. BYETTA [Suspect]
     Indication: DIABETES MELLITUS NON-INSULIN-DEPENDENT
     Dosage: SEE IMAGE
     Route: 058
     Dates: start: 20050701, end: 20050801
  2. BYETTA [Suspect]
     Indication: DIABETES MELLITUS NON-INSULIN-DEPENDENT
     Dosage: SEE IMAGE
     Route: 058
     Dates: start: 20050801
  3. AVANDIA [Concomitant]
  4. AMARYL [Concomitant]
  5. FORTAMET [Concomitant]
  6. ECOTRIN [Concomitant]

REACTIONS (1)
  - INJECTION SITE BRUISING [None]
